FAERS Safety Report 25713007 (Version 2)
Quarter: 2025Q4

REPORT INFORMATION
  Report Type: Spontaneous
  Country: US (occurrence: US)
  Receive Date: 20250821
  Receipt Date: 20251111
  Transmission Date: 20260117
  Serious: No
  Sender: SANOFI AVENTIS
  Company Number: US-SA-2025SA250494

PATIENT
  Age: 39 Year
  Sex: Female

DRUGS (2)
  1. DUPIXENT [Suspect]
     Active Substance: DUPILUMAB
     Indication: Neurodermatitis
     Dosage: 300 MG, QOW
     Route: 058
     Dates: start: 202503, end: 2025
  2. SALICYLIC ACID [Suspect]
     Active Substance: SALICYLIC ACID
     Dosage: UNK
     Dates: start: 2025, end: 2025

REACTIONS (4)
  - Dry skin [Unknown]
  - Eye infection [Unknown]
  - Neurodermatitis [Unknown]
  - Drug hypersensitivity [Unknown]

NARRATIVE: CASE EVENT DATE: 20250101
